FAERS Safety Report 24861063 (Version 2)
Quarter: 2025Q1

REPORT INFORMATION
  Report Type: Spontaneous
  Country: CH (occurrence: CH)
  Receive Date: 20250120
  Receipt Date: 20250228
  Transmission Date: 20250409
  Serious: Yes (Other)
  Sender: TERSERA THERAPEUTICS
  Company Number: CH-ASTRAZENECA-202501CHE009723CH

PATIENT

DRUGS (8)
  1. GOSERELIN [Suspect]
     Active Substance: GOSERELIN
     Indication: Invasive breast carcinoma
     Route: 065
     Dates: start: 201811, end: 201902
  2. ZOLADEX [Suspect]
     Active Substance: GOSERELIN ACETATE
     Indication: Invasive breast carcinoma
     Route: 065
  3. FASLODEX [Suspect]
     Active Substance: FULVESTRANT
     Indication: Invasive breast carcinoma
     Route: 065
     Dates: start: 201902, end: 202207
  4. XELODA [Concomitant]
     Active Substance: CAPECITABINE
     Indication: Product used for unknown indication
     Route: 065
  5. ENHERTU [Concomitant]
     Active Substance: FAM-TRASTUZUMAB DERUXTECAN-NXKI
     Indication: Product used for unknown indication
     Route: 065
  6. EPIRUBICIN [Concomitant]
     Active Substance: EPIRUBICIN
     Indication: Product used for unknown indication
     Route: 065
  7. EXEMESTANE [Concomitant]
     Active Substance: EXEMESTANE
     Indication: Product used for unknown indication
     Route: 065
  8. XGEVA [Concomitant]
     Active Substance: DENOSUMAB
     Indication: Product used for unknown indication
     Route: 065

REACTIONS (2)
  - Malignant neoplasm progression [Unknown]
  - Cerebrovascular accident [Recovered/Resolved]
